FAERS Safety Report 18716660 (Version 1)
Quarter: 2021Q1

REPORT INFORMATION
  Report Type: Spontaneous
  Country: US (occurrence: US)
  Receive Date: 20210107
  Receipt Date: 20210107
  Transmission Date: 20210419
  Serious: Yes (Life-Threatening, Hospitalization)
  Sender: FDA-Public Use
  Company Number: None

PATIENT
  Age: 60 Year
  Sex: Female

DRUGS (2)
  1. AZITHROMYCIN (AZITHROMYCIN 500MG/VIL INJ) [Suspect]
     Active Substance: AZITHROMYCIN
     Indication: INFECTION
     Route: 042
     Dates: start: 20200227, end: 20200228
  2. AZITHROMYCIN (AZITHROMYCIN 500MG/VIL INJ) [Suspect]
     Active Substance: AZITHROMYCIN
     Indication: PNEUMONIA
     Route: 042
     Dates: start: 20200227, end: 20200228

REACTIONS (3)
  - Ventricular fibrillation [None]
  - Torsade de pointes [None]
  - Cardiac arrest [None]

NARRATIVE: CASE EVENT DATE: 20200228
